FAERS Safety Report 10915974 (Version 1)
Quarter: 2015Q1

REPORT INFORMATION
  Report Type: Spontaneous
  Country: US (occurrence: None)
  Receive Date: 20150311
  Receipt Date: 20150311
  Transmission Date: 20150721
  Serious: Yes (Hospitalization)
  Sender: FDA-Public Use
  Company Number: None

PATIENT
  Age: 92 Year
  Sex: Male
  Weight: 71 kg

DRUGS (20)
  1. CLOPIDOGREL [Suspect]
     Active Substance: CLOPIDOGREL BISULFATE
     Indication: CORONARY ARTERY DISEASE
     Dosage: 1 TABLET
     Route: 048
  2. POLYETHYLENE GLYCOL (MIRALAX PO) [Concomitant]
  3. RISPERIDONE (RISPERDAL) [Concomitant]
  4. ASPIRIN. [Suspect]
     Active Substance: ASPIRIN
     Indication: CORONARY ARTERY DISEASE
     Dosage: 1 TABLET
     Route: 048
  5. REMERON [Concomitant]
     Active Substance: MIRTAZAPINE
  6. CHOLECALCIFEROL (VITAMIN D3) [Concomitant]
  7. MULTIPLE VITAMINS-MINERALS (PRESERVISION AREDS PO) [Concomitant]
  8. TYLENOL [Concomitant]
     Active Substance: ACETAMINOPHEN
  9. LISINOPRL (ZESTRIL) [Concomitant]
  10. MAGNESIUM OXIDE. [Concomitant]
     Active Substance: MAGNESIUM OXIDE
  11. METOPROLOL (LOPRESSOR) [Concomitant]
  12. RIVASTIGMINE (EXELON) [Concomitant]
  13. LIPITOR [Concomitant]
     Active Substance: ATORVASTATIN CALCIUM
  14. DOCUSATE SODIUM (COLACE) [Concomitant]
  15. MULTIPLE VITAMINS-MINERALS (MULTIVITAMIN PO) [Concomitant]
  16. OMPERAZOLE (PRILOSEC) [Concomitant]
  17. BISACODYL (DULCOLAX) [Concomitant]
  18. MAGNESIUM HYDROXIDE (MILK OF MAGNESIA) [Concomitant]
  19. FLOMAX [Concomitant]
     Active Substance: TAMSULOSIN HYDROCHLORIDE
  20. METHYLCELLULOSE (ARTIFICIAL TEARS) [Concomitant]

REACTIONS (4)
  - Haemoglobin decreased [None]
  - Faeces discoloured [None]
  - Rectal haemorrhage [None]
  - Haematochezia [None]

NARRATIVE: CASE EVENT DATE: 20140624
